APPROVED DRUG PRODUCT: LEVALBUTEROL HYDROCHLORIDE
Active Ingredient: LEVALBUTEROL HYDROCHLORIDE
Strength: EQ 0.25% BASE
Dosage Form/Route: SOLUTION;INHALATION
Application: A078309 | Product #001 | TE Code: AN
Applicant: MYLAN SPECIALTY LP
Approved: Mar 20, 2009 | RLD: No | RS: Yes | Type: RX